FAERS Safety Report 9263507 (Version 1)
Quarter: 2013Q2

REPORT INFORMATION
  Report Type: Report from Study
  Country: US (occurrence: US)
  Receive Date: 20130430
  Receipt Date: 20130430
  Transmission Date: 20140414
  Serious: No
  Sender: FDA-Public Use
  Company Number: US-ABBOTT-13P-163-1043325-00

PATIENT
  Sex: Female
  Weight: 54.48 kg

DRUGS (5)
  1. CREON [Suspect]
     Indication: SHWACHMAN-DIAMOND SYNDROME
     Route: 048
     Dates: start: 20080415, end: 20120419
  2. CREON [Suspect]
     Indication: PANCREATIC INSUFFICIENCY
     Dosage: 1 CAPSULE WITH EACH MEAL AND SNACK
     Route: 048
     Dates: start: 20120419
  3. FOLIC ACID [Concomitant]
     Indication: PRODUCT USED FOR UNKNOWN INDICATION
  4. IBUPROFEN [Concomitant]
     Indication: PAIN
  5. MULTIVITAMIN [Concomitant]
     Indication: PRODUCT USED FOR UNKNOWN INDICATION

REACTIONS (3)
  - Weight increased [Not Recovered/Not Resolved]
  - Abdominal distension [Not Recovered/Not Resolved]
  - Flatulence [Not Recovered/Not Resolved]
